FAERS Safety Report 5475508-0 (Version None)
Quarter: 2007Q4

REPORT INFORMATION
  Report Type: 
  Country: None (occurrence: None)
  Receive Date: 20071003
  Receipt Date: 20070926
  Transmission Date: 20080405
  Serious: Yes (Hospitalization)
  Sender: FDA-Public Use
  Company Number: GB-BAUSCH-2007BL000793

PATIENT
  Age: 65 Year
  Sex: Female

DRUGS (4)
  1. MINIMS PILOCARPINE NITRATE 4% [Suspect]
     Indication: ANGLE CLOSURE GLAUCOMA
     Route: 047
  2. DEXAMETHASONE SODIUM PHOSPHATE [Suspect]
     Indication: ANGLE CLOSURE GLAUCOMA
     Route: 061
  3. ACETAZOLAMIDE [Suspect]
     Indication: ANGLE CLOSURE GLAUCOMA
     Route: 042
  4. IOPIDINE 1% [Suspect]
     Indication: ANGLE CLOSURE GLAUCOMA
     Route: 047

REACTIONS (2)
  - RETINAL HAEMORRHAGE [None]
  - RETINOPATHY [None]
